FAERS Safety Report 7908759-3 (Version None)
Quarter: 2011Q4

REPORT INFORMATION
  Report Type: 
  Country: None (occurrence: None)
  Receive Date: 20111111
  Receipt Date: 20111109
  Transmission Date: 20120403
  Serious: No
  Sender: FDA-Public Use
  Company Number: US-PFIZER INC-2011260563

PATIENT
  Sex: Male
  Weight: 83.7 kg

DRUGS (32)
  1. DILANTIN-125 [Suspect]
     Dosage: UNK
  2. PROCHLORPERAZINE [Concomitant]
     Indication: VOMITING
  3. SIMVASTATIN [Concomitant]
     Dosage: 20 MG, AT BEDTIME
     Route: 048
  4. LEVETIRACETAM [Concomitant]
     Dosage: 500 MG,
     Route: 048
  5. LISINOPRIL [Concomitant]
     Dosage: 20 MG, EVERY DAY
     Route: 048
  6. KEPPRA [Concomitant]
     Indication: CONVULSION
     Dosage: 500 MG, 2X/DAY
  7. XANAX [Concomitant]
     Indication: DEPRESSION
  8. PEPCID [Concomitant]
     Dosage: 20 MG, 2X/DAY
  9. CABAZITAXEL [Concomitant]
     Dosage: UNK
  10. ALPRAZOLAM [Concomitant]
     Indication: ANXIETY
     Dosage: 1 MG, 3X/DAY; AS NEEDED
     Route: 048
  11. ALPRAZOLAM [Concomitant]
     Indication: NAUSEA
  12. ZOLPIDEM [Concomitant]
     Indication: SLEEP DISORDER
     Dosage: 10 MG, AT BEDTIME; AS NEEDED
     Route: 048
  13. DEXAMETHASONE [Concomitant]
     Dosage: 4 MG, AS DIRECTED
     Route: 048
  14. ONDANSETRON [Concomitant]
     Indication: VOMITING
  15. PROCHLORPERAZINE [Concomitant]
     Indication: NAUSEA
     Dosage: 10 MG, AT BEDTIME
     Route: 048
  16. XANAX [Concomitant]
     Indication: ANXIETY
     Dosage: 1 TABLET EVERY 3 HOURS AS NEEDED FOR ANXIETY OR 2 TABLETS AT BED TIME FOR SLEEP
  17. LEXAPRO [Concomitant]
     Indication: ANXIETY
     Dosage: 20 MG, EVERY DAY
     Route: 048
  18. ONDANSETRON [Concomitant]
     Indication: NAUSEA
     Dosage: 8 MG, EVERY 12 HOURS
     Route: 048
  19. RESTORIL [Concomitant]
     Indication: SLEEP DISORDER
     Dosage: 15 MG, AT BEDTIME
     Route: 048
  20. MULTI-VITAMINS [Concomitant]
     Dosage: UNK
  21. FAMOTIDINE [Concomitant]
     Dosage: 20 MG, 2X/DAY
     Route: 048
  22. MEGACE [Concomitant]
     Dosage: 800 MG, EVERY DAY
     Route: 048
  23. ALPRAZOLAM [Concomitant]
     Indication: VOMITING
  24. METFORMIN [Concomitant]
     Dosage: 1000 MG, 2X/DAY
     Route: 048
  25. PAXIL [Concomitant]
     Dosage: 40 MG, EVERY DAY
     Route: 048
  26. ALPRAZOLAM [Concomitant]
     Indication: INSOMNIA
  27. ZOLPIDEM [Concomitant]
     Dosage: 12.5 MG, AT BEDTIME
  28. SENNA [Concomitant]
     Dosage: UNK
  29. BENADRYL [Concomitant]
     Dosage: UNK
  30. CODEINE AND GUAIFENESIN [Concomitant]
     Dosage: 10 ML, EVERY 4 HOURS; AS NEEDED
     Route: 048
  31. LEXAPRO [Concomitant]
     Indication: DEPRESSION
     Dosage: 10 MG, 1X/DAY
  32. XANAX [Concomitant]
     Indication: SLEEP DISORDER

REACTIONS (1)
  - DRUG HYPERSENSITIVITY [None]
